FAERS Safety Report 18413225 (Version 1)
Quarter: 2020Q4

REPORT INFORMATION
  Report Type: Other
  Country: CA (occurrence: CA)
  Receive Date: 20201022
  Receipt Date: 20201022
  Transmission Date: 20210114
  Serious: Yes (Other)
  Sender: FDA-Public Use
  Company Number: CA-APOTEX-2020AP020016

PATIENT
  Age: 64 Year
  Sex: Female

DRUGS (2)
  1. DASATINIB. [Suspect]
     Active Substance: DASATINIB
     Indication: CHRONIC MYELOID LEUKAEMIA
     Dosage: 100 MILLIGRAM, BID
     Route: 048
  2. ARCOSYL [Concomitant]
     Active Substance: PERINDOPRIL ARGININE
     Indication: BLOOD PRESSURE MEASUREMENT
     Dosage: UNK
     Route: 048

REACTIONS (2)
  - Intentional product use issue [Not Recovered/Not Resolved]
  - Pleural effusion [Not Recovered/Not Resolved]
